FAERS Safety Report 7132204-1 (Version None)
Quarter: 2010Q4

REPORT INFORMATION
  Report Type: 
  Country: None (occurrence: None)
  Receive Date: 20101202
  Receipt Date: 20101125
  Transmission Date: 20110411
  Serious: Yes (Hospitalization)
  Sender: FDA-Public Use
  Company Number: GB-GENZYME-FABR-1001672

PATIENT

DRUGS (8)
  1. FABRAZYME [Suspect]
     Indication: FABRY'S DISEASE
     Dosage: 35 MG, Q2W
     Route: 042
  2. FABRAZYME [Suspect]
     Dosage: 70 MG, Q2W
     Route: 042
  3. CLOPIDOGREL [Concomitant]
     Indication: ANTICOAGULANT THERAPY
     Dosage: UNK
     Dates: start: 20101116
  4. ATENOLOL [Concomitant]
     Indication: CARDIAC DISORDER
     Dosage: 50 MG, UNK
  5. SIMVASTATIN [Concomitant]
     Indication: CARDIAC DISORDER
     Dosage: 40 MG, UNK
  6. VALSARTAN [Concomitant]
     Indication: CARDIAC DISORDER
     Dosage: 160 MG, UNK
  7. BECLOMETHASONE DIPROPIONATE [Concomitant]
     Indication: RESPIRATORY DISORDER
     Dosage: 2 PUFFS
  8. ALLOPURINOL [Concomitant]
     Indication: GOUT
     Dosage: 100 MG, UNK

REACTIONS (1)
  - MYOCARDIAL INFARCTION [None]
